FAERS Safety Report 4646086-0 (Version None)
Quarter: 2005Q2

REPORT INFORMATION
  Report Type: 
  Country: None (occurrence: None)
  Receive Date: 20050427
  Receipt Date: 20040712
  Transmission Date: 20051028
  Serious: No
  Sender: FDA-Public Use
  Company Number: US-GLAXOSMITHKLINE-A0517828A

PATIENT
  Age: 3 Year
  Sex: Female

DRUGS (2)
  1. ZOFRAN [Suspect]
     Route: 042
  2. ANTIBIOTIC [Concomitant]

REACTIONS (7)
  - AGITATION [None]
  - DIFFICULTY IN WALKING [None]
  - DYSKINESIA [None]
  - DYSTONIA [None]
  - FALL [None]
  - JOINT STIFFNESS [None]
  - MUSCULOSKELETAL STIFFNESS [None]
